FAERS Safety Report 23561343 (Version 2)
Quarter: 2024Q1

REPORT INFORMATION
  Report Type: Spontaneous
  Country: US (occurrence: US)
  Receive Date: 20240224
  Receipt Date: 20240314
  Transmission Date: 20240410
  Serious: No
  Sender: FDA-Public Use
  Company Number: US-GLAXOSMITHKLINE-US2024AMR021334

PATIENT
  Sex: Female

DRUGS (1)
  1. ZEJULA [Suspect]
     Active Substance: NIRAPARIB
     Indication: Ovarian cancer
     Dosage: 200 MG, QD

REACTIONS (12)
  - Hot flush [Unknown]
  - Vomiting [Unknown]
  - Nausea [Unknown]
  - Back pain [Unknown]
  - Headache [Unknown]
  - Ear pain [Unknown]
  - Eye pain [Unknown]
  - Insomnia [Unknown]
  - Pruritus [Unknown]
  - Throat irritation [Unknown]
  - Blood pressure diastolic increased [Recovered/Resolved]
  - Full blood count decreased [Unknown]
